FAERS Safety Report 10006609 (Version 2)
Quarter: 2014Q1

REPORT INFORMATION
  Report Type: Spontaneous
  Country: IL (occurrence: IL)
  Receive Date: 20140313
  Receipt Date: 20140327
  Transmission Date: 20141002
  Serious: Yes (Other)
  Sender: FDA-Public Use
  Company Number: IL-JNJFOC-20140302747

PATIENT
  Sex: 0

DRUGS (5)
  1. REMICADE [Suspect]
     Indication: INFLAMMATORY BOWEL DISEASE
     Route: 042
  2. CORTICOSTEROIDS [Concomitant]
     Route: 065
  3. METHOTREXATE [Concomitant]
     Route: 065
  4. 6-MERCAPTOPURINE [Concomitant]
     Route: 065
  5. AZATHIOPRINE [Concomitant]
     Route: 065

REACTIONS (7)
  - Lupus-like syndrome [Recovered/Resolved]
  - Therapeutic response decreased [Recovered/Resolved]
  - Serositis [Recovered/Resolved]
  - Arthropathy [Recovered/Resolved]
  - Dermatitis [Recovered/Resolved]
  - Fatigue [Recovered/Resolved]
  - Pyrexia [Recovered/Resolved]
